FAERS Safety Report 19136455 (Version 1)
Quarter: 2021Q2

REPORT INFORMATION
  Report Type: Spontaneous
  Country: LB (occurrence: LB)
  Receive Date: 20210414
  Receipt Date: 20210414
  Transmission Date: 20210717
  Serious: Yes (Death)
  Sender: FDA-Public Use
  Company Number: LB-ASTRAZENECA-2021A294144

PATIENT
  Age: 52 Year
  Sex: Female

DRUGS (3)
  1. FASLODEX [Suspect]
     Active Substance: FULVESTRANT
     Indication: BREAST CANCER METASTATIC
     Dosage: UNKNOWN
     Route: 030
  2. ZOMETA [Concomitant]
     Active Substance: ZOLEDRONIC ACID
  3. IBRANCE [Suspect]
     Active Substance: PALBOCICLIB
     Indication: BREAST CANCER METASTATIC
     Dosage: 125 MG ONCE DAILY FOR 21 DAYS EVERY 28 DAYS
     Route: 048
     Dates: start: 202012, end: 202102

REACTIONS (1)
  - Malignant neoplasm progression [Fatal]
